FAERS Safety Report 8351977-3 (Version None)
Quarter: 2012Q2

REPORT INFORMATION
  Report Type: 
  Country: None (occurrence: None)
  Receive Date: 20120510
  Receipt Date: 20120510
  Transmission Date: 20120825
  Serious: Yes (Hospitalization)
  Sender: FDA-Public Use
  Company Number: None

PATIENT
  Sex: Male
  Weight: 74.3 kg

DRUGS (2)
  1. CISPLATIN [Suspect]
     Dosage: 329 MG
     Dates: end: 20120402
  2. TAXOL [Suspect]
     Dosage: 648 MG
     Dates: end: 20120402

REACTIONS (4)
  - NAUSEA [None]
  - DEHYDRATION [None]
  - VOMITING [None]
  - WEIGHT DECREASED [None]
